FAERS Safety Report 5781093-6 (Version None)
Quarter: 2008Q2

REPORT INFORMATION
  Report Type: 
  Country: None (occurrence: None)
  Receive Date: 20080618
  Receipt Date: 20080603
  Transmission Date: 20081010
  Serious: Yes (Hospitalization)
  Sender: FDA-Public Use
  Company Number: 2008001291

PATIENT
  Sex: Male
  Weight: 74 kg

DRUGS (2)
  1. ERLOTINIB (ERLOTINIB) [Suspect]
     Indication: HEPATIC NEOPLASM MALIGNANT
     Dosage: 150 MG,QD,DAYS 1-28,ORAL
     Route: 048
     Dates: start: 20071027
  2. BEVACIZUMAB (INJECTION FOR INFUSION) [Suspect]
     Dosage: 10 MG/KG,DAYS 1 AND 15,INTRAVENOUS
     Route: 042
     Dates: start: 20071227

REACTIONS (3)
  - CONFUSIONAL STATE [None]
  - DISORIENTATION [None]
  - PLEURAL EFFUSION [None]
